FAERS Safety Report 14524244 (Version 1)
Quarter: 2018Q1

REPORT INFORMATION
  Report Type: Other
  Country: IE (occurrence: IE)
  Receive Date: 20180213
  Receipt Date: 20180213
  Transmission Date: 20180509
  Serious: Yes (Death)
  Sender: FDA-Public Use
  Company Number: IE-ACTELION-A-CH2018-167202

PATIENT
  Age: 13 Year
  Sex: Female

DRUGS (2)
  1. SILDENAFIL. [Concomitant]
     Active Substance: SILDENAFIL
  2. BOSENTAN. [Suspect]
     Active Substance: BOSENTAN
     Indication: PULMONARY ARTERIAL HYPERTENSION
     Route: 048

REACTIONS (7)
  - Collateral circulation [Unknown]
  - Congenital coronary artery malformation [Unknown]
  - Therapy non-responder [Unknown]
  - Pulmonary haemorrhage [Fatal]
  - Haemoptysis [Unknown]
  - Arteriovenous malformation [Unknown]
  - Cyanosis [Unknown]
